FAERS Safety Report 17220716 (Version 1)
Quarter: 2019Q4

REPORT INFORMATION
  Report Type: Spontaneous
  Country: NL (occurrence: FR)
  Receive Date: 20191231
  Receipt Date: 20191231
  Transmission Date: 20200122
  Serious: Yes (Hospitalization, Other)
  Sender: FDA-Public Use
  Company Number: FR-FRESENIUS KABI-FK201914650

PATIENT
  Sex: Male
  Weight: 83.8 kg

DRUGS (5)
  1. RANITIDINE HYDROCHLORIDE. [Concomitant]
     Active Substance: RANITIDINE HYDROCHLORIDE
     Indication: PROPHYLAXIS
     Route: 048
     Dates: start: 20190308, end: 20190308
  2. PACLITAXEL (MANUFACTURER UNKNOWN) [Suspect]
     Active Substance: PACLITAXEL
     Indication: OESOPHAGEAL ADENOCARCINOMA
     Dosage: 168 MILLIGRAM
     Route: 041
     Dates: start: 20190308, end: 20190308
  3. ONDANSETRON [Concomitant]
     Active Substance: ONDANSETRON
     Indication: PROPHYLAXIS
     Route: 048
     Dates: start: 20190308
  4. CARBOPLATIN. [Interacting]
     Active Substance: CARBOPLATIN
     Indication: OESOPHAGEAL ADENOCARCINOMA
     Dosage: 230 MILLIGRAM
     Route: 041
     Dates: start: 20190308, end: 20190308
  5. LEVOCETIRIZINE DIHYDROCHLORIDE. [Concomitant]
     Active Substance: LEVOCETIRIZINE DIHYDROCHLORIDE
     Indication: PROPHYLAXIS
     Route: 048
     Dates: start: 20190308, end: 20190308

REACTIONS (5)
  - Urinary tract infection [Recovered/Resolved]
  - Aplasia [Recovered/Resolved]
  - Abscess limb [Recovered/Resolved]
  - Escherichia sepsis [Recovered/Resolved]
  - Drug interaction [Recovered/Resolved]

NARRATIVE: CASE EVENT DATE: 20190315
